FAERS Safety Report 14079943 (Version 2)
Quarter: 2017Q4

REPORT INFORMATION
  Report Type: Spontaneous
  Country: JP (occurrence: JP)
  Receive Date: 20171012
  Receipt Date: 20171017
  Transmission Date: 20180321
  Serious: Yes (Other)
  Sender: FDA-Public Use
  Company Number: JP-JNJFOC-20171006995

PATIENT

DRUGS (1)
  1. TRAMCET [Suspect]
     Active Substance: ACETAMINOPHEN\TRAMADOL
     Indication: PAIN
     Route: 048

REACTIONS (14)
  - Fall [Unknown]
  - Malaise [Unknown]
  - Decreased appetite [Unknown]
  - Feeling abnormal [Unknown]
  - Abdominal pain upper [Unknown]
  - Nausea [Unknown]
  - Dyspepsia [Unknown]
  - Palpitations [Unknown]
  - Dizziness [Unknown]
  - Abdominal discomfort [Unknown]
  - Vomiting [Unknown]
  - Serotonin syndrome [Unknown]
  - Constipation [Unknown]
  - Inadequate analgesia [Unknown]
